FAERS Safety Report 9335119 (Version 2)
Quarter: 2014Q1

REPORT INFORMATION
  Report Type: Report from Study
  Country: ES (occurrence: ES)
  Receive Date: 20130606
  Receipt Date: 20140103
  Transmission Date: 20141002
  Serious: Yes (Life-Threatening, Hospitalization)
  Sender: FDA-Public Use
  Company Number: ES-ASTELLAS-2013US005842

PATIENT
  Age: 73 Year
  Sex: Male

DRUGS (7)
  1. ERLOTINIB TABLET [Suspect]
     Indication: LUNG NEOPLASM MALIGNANT
     Dosage: 150 MG, UID/QD
     Route: 048
     Dates: start: 20130406
  2. BEVACIZUMAB [Suspect]
     Indication: LUNG NEOPLASM MALIGNANT
     Dosage: 450 MG, CYCLIC (DAY 1)
     Route: 042
     Dates: start: 20130402
  3. PACLITAXEL [Suspect]
     Indication: LUNG NEOPLASM MALIGNANT
     Dosage: 274.75 MG, CYCLIC (DAY 1)
     Route: 042
     Dates: start: 20130402
  4. CARBOPLATIN [Suspect]
     Indication: LUNG NEOPLASM MALIGNANT
     Dosage: 450 MG, CYCLIC(DAY 1)
     Route: 042
     Dates: start: 20130402
  5. FENTANYL CITRATE [Suspect]
     Indication: PAIN
     Dosage: 25 UG, EVERY 2 DAYS
     Route: 062
     Dates: start: 20130323
  6. IBUPROFEN [Concomitant]
     Indication: PRODUCT USED FOR UNKNOWN INDICATION
     Dosage: 1800 MG, UNKNOWN/D
     Route: 048
  7. OMEPRAZOL                          /00661201/ [Concomitant]
     Indication: PRODUCT USED FOR UNKNOWN INDICATION
     Dosage: 20 MG, UNKNOWN/D
     Route: 048

REACTIONS (5)
  - Mucosal inflammation [Unknown]
  - Dehydration [Unknown]
  - Vomiting [Unknown]
  - Neutropenia [Recovered/Resolved]
  - Diarrhoea [Recovered/Resolved]
